FAERS Safety Report 9900474 (Version 3)
Quarter: 2014Q2

REPORT INFORMATION
  Report Type: Report from Study
  Country: US (occurrence: US)
  Receive Date: 20140217
  Receipt Date: 20140609
  Transmission Date: 20141212
  Serious: Yes (Other)
  Sender: FDA-Public Use
  Company Number: US-BIOGENIDEC-2014BI013253

PATIENT
  Age: 46 Year
  Sex: Female
  Weight: 93 kg

DRUGS (16)
  1. TYSABRI [Suspect]
     Indication: RELAPSING-REMITTING MULTIPLE SCLEROSIS
     Route: 042
     Dates: start: 20130206
  2. ACETAMINOPHEN [Concomitant]
     Indication: PAIN
     Route: 048
     Dates: start: 20131027
  3. ALPRAZOLAM [Concomitant]
     Indication: ANXIETY
     Route: 048
  4. FIORICET [Concomitant]
     Indication: HEADACHE
     Route: 048
     Dates: start: 20131027
  5. PRISTIQ ER [Concomitant]
     Indication: ANTIDEPRESSANT THERAPY
     Dates: start: 201103, end: 20131027
  6. PRISTIQ ER [Concomitant]
     Indication: ANTIDEPRESSANT THERAPY
     Route: 048
     Dates: start: 20131103
  7. DIAZEPAM [Concomitant]
     Indication: INSOMNIA
     Route: 048
  8. GABAPENTIN [Concomitant]
     Indication: TRIGEMINAL NEURALGIA
     Route: 048
     Dates: start: 20130717
  9. PROVIGIL [Concomitant]
     Indication: FATIGUE
     Route: 048
     Dates: start: 20130716
  10. ZOFRAN [Concomitant]
     Route: 048
  11. TOPIRAMATE [Concomitant]
     Indication: PAIN
     Route: 048
  12. TOPIRAMATE [Concomitant]
     Indication: PAIN
     Route: 048
  13. COUMADIN [Concomitant]
     Indication: ANTICOAGULANT THERAPY
     Route: 048
     Dates: start: 20131027
  14. COUMADIN [Concomitant]
     Indication: ANTICOAGULANT THERAPY
     Route: 048
     Dates: start: 20131028
  15. FLEXERIL [Concomitant]
     Route: 048
  16. KEPPRA [Concomitant]
     Route: 048

REACTIONS (1)
  - Loss of consciousness [Recovered/Resolved]
